FAERS Safety Report 23652203 (Version 1)
Quarter: 2024Q1

REPORT INFORMATION
  Report Type: Spontaneous
  Country: US (occurrence: US)
  Receive Date: 20240320
  Receipt Date: 20240320
  Transmission Date: 20240410
  Serious: Yes (Hospitalization)
  Sender: FDA-Public Use
  Company Number: US-DRL-USA-LIT/USA/24/0004069

PATIENT
  Age: 62 Year
  Sex: Male

DRUGS (6)
  1. DOXYCYCLINE [Suspect]
     Active Substance: DOXYCYCLINE
     Indication: Pneumothorax
  2. DOXYCYCLINE [Suspect]
     Active Substance: DOXYCYCLINE
     Indication: Pleurodesis
  3. BUPIVACAINE [Concomitant]
     Active Substance: BUPIVACAINE
     Indication: Pneumothorax
     Dosage: 20ML OF 0.75%
  4. BUPIVACAINE [Concomitant]
     Active Substance: BUPIVACAINE
     Indication: Pleurodesis
  5. SODIUM CHLORIDE [Concomitant]
     Active Substance: SODIUM CHLORIDE
     Indication: Pneumothorax
  6. SODIUM CHLORIDE [Concomitant]
     Active Substance: SODIUM CHLORIDE
     Indication: Pleurodesis

REACTIONS (2)
  - Traumatic lung injury [Recovering/Resolving]
  - Acute respiratory failure [Recovering/Resolving]
